FAERS Safety Report 15955379 (Version 1)
Quarter: 2019Q1

REPORT INFORMATION
  Report Type: Report from Study
  Country: ES (occurrence: ES)
  Receive Date: 20190213
  Receipt Date: 20190213
  Transmission Date: 20190417
  Serious: Yes (Other)
  Sender: FDA-Public Use
  Company Number: ES-ACCORD-106924

PATIENT
  Age: 53 Year
  Sex: Male

DRUGS (4)
  1. DULAGLUTIDE. [Suspect]
     Active Substance: DULAGLUTIDE
     Indication: PRODUCT USED FOR UNKNOWN INDICATION
     Route: 058
     Dates: start: 20170330
  2. METFORMIN [Suspect]
     Active Substance: METFORMIN HYDROCHLORIDE
     Indication: DIABETES MELLITUS
     Route: 048
     Dates: start: 20170330
  3. SIMVASTATIN. [Suspect]
     Active Substance: SIMVASTATIN
     Indication: PRODUCT USED FOR UNKNOWN INDICATION
     Route: 048
     Dates: start: 20170330
  4. ADIRO [Concomitant]
     Active Substance: ASPIRIN
     Dosage: 0-1-0 STRENGHT: 100 MG 30 TABLETS
     Route: 048
     Dates: start: 20170330

REACTIONS (2)
  - Lipase increased [Not Recovered/Not Resolved]
  - Hyperamylasaemia [Unknown]

NARRATIVE: CASE EVENT DATE: 20170905
